FAERS Safety Report 8886478 (Version 2)
Quarter: 2014Q1

REPORT INFORMATION
  Report Type: Report from Study
  Country: US (occurrence: US)
  Receive Date: 20121105
  Receipt Date: 20140304
  Transmission Date: 20141002
  Serious: Yes (Other)
  Sender: FDA-Public Use
  Company Number: US-BAXTER-2012BAX022071

PATIENT
  Age: 86 Year
  Sex: 0

DRUGS (3)
  1. CYCLOPHOSPHAMIDE FOR INJECTION, USP [Suspect]
     Indication: CHRONIC LYMPHOCYTIC LEUKAEMIA
     Dosage: CYCLE 2 DAY 4
     Route: 042
     Dates: start: 20100930, end: 20100930
  2. FLUDARABINE [Suspect]
     Indication: CHRONIC LYMPHOCYTIC LEUKAEMIA
     Dosage: CYCLE 1, DAY 1-2-3
     Route: 042
     Dates: start: 20100902, end: 20100930
  3. RITUXIMAB [Suspect]
     Indication: CHRONIC LYMPHOCYTIC LEUKAEMIA
     Dosage: CYCLE 2 DAY 1
     Route: 042
     Dates: start: 20100927, end: 20100927

REACTIONS (8)
  - Anaemia [Unknown]
  - Mucosal inflammation [Unknown]
  - Failure to thrive [Unknown]
  - Gastrointestinal fungal infection [Unknown]
  - Gastrointestinal viral infection [Unknown]
  - Chronic lymphocytic leukaemia [Unknown]
  - Pancytopenia [Unknown]
  - Chronic lymphocytic leukaemia [Unknown]
